FAERS Safety Report 9050825 (Version 2)
Quarter: 2013Q1

REPORT INFORMATION
  Report Type: Spontaneous
  Country: US (occurrence: US)
  Receive Date: 20130205
  Receipt Date: 20130225
  Transmission Date: 20140127
  Serious: No
  Sender: FDA-Public Use
  Company Number: US-BIOGENIDEC-2013BI008727

PATIENT
  Age: 43 Year
  Sex: Female

DRUGS (1)
  1. TYSABRI [Suspect]
     Indication: MULTIPLE SCLEROSIS
     Route: 042
     Dates: start: 20121210

REACTIONS (6)
  - Road traffic accident [Recovered/Resolved]
  - Weight increased [Not Recovered/Not Resolved]
  - Laryngeal operation [Recovered/Resolved]
  - Fracture [Unknown]
  - Cartilage injury [Unknown]
  - Post-traumatic neck syndrome [Unknown]
